FAERS Safety Report 10229210 (Version 2)
Quarter: 2014Q3

REPORT INFORMATION
  Report Type: Spontaneous
  Country: NL (occurrence: NL)
  Receive Date: 20140611
  Receipt Date: 20140813
  Transmission Date: 20150326
  Serious: Yes (Other)
  Sender: FDA-Public Use
  Company Number: NL-AMGEN-NLDSP2014042705

PATIENT
  Age: 67 Year
  Sex: Female

DRUGS (2)
  1. NEULASTA [Suspect]
     Active Substance: PEGFILGRASTIM
     Indication: PRODUCT USED FOR UNKNOWN INDICATION
     Dosage: 6 UNK, 1Q3W
     Route: 058
     Dates: start: 20140513, end: 20140517
  2. DOCETAXEL [Concomitant]
     Active Substance: DOCETAXEL
     Indication: BREAST CANCER
     Dosage: UNK
     Dates: start: 20140512

REACTIONS (7)
  - Fluid retention [Unknown]
  - Dizziness [Unknown]
  - Visual impairment [Unknown]
  - Dry mouth [Unknown]
  - Pain in extremity [Unknown]
  - Wound [Unknown]
  - Back pain [Unknown]

NARRATIVE: CASE EVENT DATE: 20140520
